FAERS Safety Report 7492222 (Version 5)
Quarter: 2018Q3

REPORT INFORMATION
  Report Type: Spontaneous
  Country: FR (occurrence: FR)
  Receive Date: 20100721
  Receipt Date: 20180914
  Transmission Date: 20181010
  Serious: Yes (Hospitalization)
  Sender: FDA-Public Use
  Company Number: FR-PFIZER INC-2010085851

PATIENT
  Age: 86 Year
  Sex: Female

DRUGS (12)
  1. ALDALIX [Concomitant]
     Active Substance: FUROSEMIDE SODIUM\SPIRONOLACTONE
  2. ALPRAZOLAM. [Concomitant]
     Active Substance: ALPRAZOLAM
  3. FUROSEMIDE. [Concomitant]
     Active Substance: FUROSEMIDE
  4. RISPERDAL [Suspect]
     Active Substance: RISPERIDONE
     Indication: DEMENTIA ALZHEIMER^S TYPE
     Dosage: UNK
     Dates: start: 201006
  5. ESCITALOPRAM [Concomitant]
     Active Substance: ESCITALOPRAM OXALATE
  6. VERAPAMIL [Concomitant]
     Active Substance: VERAPAMIL HYDROCHLORIDE
  7. LEVOTHYROX [Concomitant]
     Active Substance: LEVOTHYROXINE
  8. PLAVIX [Concomitant]
     Active Substance: CLOPIDOGREL BISULFATE
  9. BUFLOMEDIL [Concomitant]
     Active Substance: BUFLOMEDIL
  10. DIFFU K [Concomitant]
     Active Substance: POTASSIUM CHLORIDE
  11. LYRICA [Suspect]
     Active Substance: PREGABALIN
     Indication: DEMENTIA ALZHEIMER^S TYPE
     Dosage: 75 MG, 1X/DAY
     Route: 048
     Dates: start: 201006
  12. EXELON [Concomitant]
     Active Substance: RIVASTIGMINE TARTRATE

REACTIONS (1)
  - Gastrointestinal obstruction [Unknown]

NARRATIVE: CASE EVENT DATE: 20100529
